FAERS Safety Report 20685048 (Version 1)
Quarter: 2022Q2

REPORT INFORMATION
  Report Type: Other
  Country: US (occurrence: None)
  Receive Date: 20220407
  Receipt Date: 20220407
  Transmission Date: 20220721
  Serious: Yes (Other)
  Sender: FDA-Public Use
  Company Number: US-ROCHE-2383383

PATIENT
  Age: 62 Year
  Sex: Female

DRUGS (8)
  1. OCREVUS [Suspect]
     Active Substance: OCRELIZUMAB
     Indication: Relapsing multiple sclerosis
     Dosage: NEXT DOSE ON 28/MAY/2019
     Route: 042
     Dates: start: 20190514
  2. OCREVUS [Suspect]
     Active Substance: OCRELIZUMAB
     Indication: Relapsing-remitting multiple sclerosis
  3. VITAMIN D3 [Concomitant]
     Active Substance: CHOLECALCIFEROL
  4. VITAMIN B COMPLEX [Concomitant]
     Active Substance: CYANOCOBALAMIN\DEXPANTHENOL\NIACINAMIDE\PYRIDOXINE HYDROCHLORIDE\RIBOFLAVIN 5^-PHOSPHATE SODIUM\THIA
     Route: 048
  5. FISH OIL [Concomitant]
     Active Substance: FISH OIL
  6. ZINC [Concomitant]
     Active Substance: ZINC
     Dates: start: 20200505
  7. RECLAST [Concomitant]
     Active Substance: ZOLEDRONIC ACID
     Route: 042
  8. ROSUVASTATIN [Concomitant]
     Active Substance: ROSUVASTATIN
     Dosage: ONCE A WEEK EVERY MONDAY
     Dates: start: 20191226

REACTIONS (13)
  - Fatigue [Unknown]
  - Influenza like illness [Unknown]
  - Myalgia [Unknown]
  - Amnesia [Unknown]
  - Weight increased [Not Recovered/Not Resolved]
  - Oropharyngeal pain [Recovered/Resolved]
  - Nausea [Not Recovered/Not Resolved]
  - Paraesthesia [Not Recovered/Not Resolved]
  - Blood cholesterol increased [Unknown]
  - Blindness unilateral [Not Recovered/Not Resolved]
  - Skin discolouration [Not Recovered/Not Resolved]
  - Eczema [Not Recovered/Not Resolved]
  - Blood potassium decreased [Unknown]

NARRATIVE: CASE EVENT DATE: 20190514
